FAERS Safety Report 9002172 (Version 1)
Quarter: 2013Q1

REPORT INFORMATION
  Report Type: Spontaneous
  Country: US (occurrence: None)
  Receive Date: 20130103
  Receipt Date: 20130103
  Transmission Date: 20140127
  Serious: Yes (Other)
  Sender: FDA-Public Use
  Company Number: None

PATIENT
  Age: 70 Year
  Sex: Female

DRUGS (1)
  1. TEMODAR [Suspect]
     Indication: BRAIN NEOPLASM MALIGNANT
     Dosage: 130MG  DAILY  PO
     Route: 048
     Dates: start: 20120209, end: 20121226

REACTIONS (3)
  - Brain neoplasm malignant [None]
  - Malignant neoplasm progression [None]
  - Platelet count decreased [None]
